FAERS Safety Report 6000271-4 (Version None)
Quarter: 2008Q4

REPORT INFORMATION
  Report Type: 
  Country: None (occurrence: None)
  Receive Date: 20081211
  Receipt Date: 20081211
  Transmission Date: 20090506
  Serious: Yes (Other)
  Sender: FDA-Public Use
  Company Number: None

PATIENT
  Sex: Female
  Weight: 65.7716 kg

DRUGS (2)
  1. IBUPROFEN [Suspect]
     Indication: HEADACHE
     Dates: start: 20080901, end: 20081120
  2. IBUPROFEN [Suspect]
     Indication: OROPHARYNGEAL PAIN
     Dates: start: 20080901, end: 20081120

REACTIONS (2)
  - DYSPNOEA [None]
  - SWELLING FACE [None]
